FAERS Safety Report 12543226 (Version 2)
Quarter: 2016Q3

REPORT INFORMATION
  Report Type: Spontaneous
  Country: SK (occurrence: SK)
  Receive Date: 20160711
  Receipt Date: 20160823
  Transmission Date: 20161109
  Serious: Yes (Other)
  Sender: FDA-Public Use
  Company Number: SK-BEH-2016070868

PATIENT
  Age: 60 Year
  Sex: Male

DRUGS (1)
  1. HUMAN FACTOR VIII (NC) [Suspect]
     Active Substance: ANTIHEMOPHILIC FACTOR HUMAN
     Indication: FACTOR VIII DEFICIENCY

REACTIONS (2)
  - Abdominal pain upper [Unknown]
  - Aortic thrombosis [Unknown]
